FAERS Safety Report 19955586 (Version 1)
Quarter: 2021Q4

REPORT INFORMATION
  Report Type: Spontaneous
  Country: US (occurrence: US)
  Receive Date: 20211014
  Receipt Date: 20211014
  Transmission Date: 20220303
  Serious: Yes (Other)
  Sender: FDA-Public Use
  Company Number: US-ELI_LILLY_AND_COMPANY-US202110000735

PATIENT
  Sex: Female

DRUGS (3)
  1. GLUCAGON [Suspect]
     Active Substance: GLUCAGON
     Indication: Seizure
     Dosage: 1 MG, SINGLE
     Route: 065
  2. GLUCAGON [Suspect]
     Active Substance: GLUCAGON
     Dosage: 1 MG, SINGLE
     Route: 065
  3. GLUCAGON [Suspect]
     Active Substance: GLUCAGON
     Dosage: 1 MG, SINGLE
     Route: 065

REACTIONS (1)
  - Loss of consciousness [Unknown]
